FAERS Safety Report 8102581 (Version 7)
Quarter: 2013Q4

REPORT INFORMATION
  Report Type: Spontaneous
  Country: US (occurrence: US)
  Receive Date: 20110823
  Receipt Date: 20131217
  Transmission Date: 20140711
  Serious: Yes (Hospitalization)
  Sender: FDA-Public Use
  Company Number: US-GLAXOSMITHKLINE-A0915681A

PATIENT
  Age: 69 Year
  Sex: Male
  Weight: 91.8 kg

DRUGS (1)
  1. AVANDIA [Suspect]
     Indication: DIABETES MELLITUS
     Dosage: 8MG PER DAY
     Route: 048
     Dates: start: 200201, end: 200710

REACTIONS (9)
  - Acute coronary syndrome [Not Recovered/Not Resolved]
  - Coronary artery disease [Unknown]
  - Cardiac failure congestive [Unknown]
  - Angioplasty [Unknown]
  - Stent placement [Unknown]
  - Coronary artery bypass [Unknown]
  - Aortic valve replacement [Unknown]
  - Peripheral arterial occlusive disease [Unknown]
  - Myocardial infarction [Unknown]
